FAERS Safety Report 24843104 (Version 1)
Quarter: 2025Q1

REPORT INFORMATION
  Report Type: Spontaneous
  Country: CH (occurrence: CH)
  Receive Date: 20250115
  Receipt Date: 20250115
  Transmission Date: 20250408
  Serious: Yes (Hospitalization)
  Sender: ROCHE
  Company Number: CH-ROCHE-10000178332

PATIENT
  Age: 73 Year
  Sex: Female

DRUGS (4)
  1. BONVIVA [Suspect]
     Active Substance: IBANDRONATE SODIUM
     Indication: Osteoporosis
     Route: 042
     Dates: start: 20241209, end: 20241209
  2. ASPIRIN [Concomitant]
     Active Substance: ASPIRIN
     Route: 048
  3. PRAVASTATIN [Concomitant]
     Active Substance: PRAVASTATIN
     Route: 048
  4. LISINOPRIL [Concomitant]
     Active Substance: LISINOPRIL
     Indication: Hypertension
     Route: 048

REACTIONS (1)
  - Hypertension [Recovered/Resolved]

NARRATIVE: CASE EVENT DATE: 20241209
